FAERS Safety Report 4577854-1 (Version None)
Quarter: 2005Q1

REPORT INFORMATION
  Report Type: 
  Country: None (occurrence: None)
  Receive Date: 20050209
  Receipt Date: 20050201
  Transmission Date: 20050727
  Serious: Yes (Death, Other)
  Sender: FDA-Public Use
  Company Number: 2005EU000211

PATIENT
  Age: 43 Year
  Sex: Male

DRUGS (3)
  1. PROGRAF [Suspect]
     Indication: LUNG TRANSPLANT
     Dosage: UNK, UNKNOWN/D; ORAL
     Route: 048
  2. METHYLPREDNISOLONE [Concomitant]
  3. SIROLIMUS [Concomitant]

REACTIONS (6)
  - ANASTOMOTIC COMPLICATION [None]
  - ASPERGILLOSIS [None]
  - LUNG INFECTION [None]
  - MULTI-ORGAN FAILURE [None]
  - PSEUDOMONAS INFECTION [None]
  - STAPHYLOCOCCAL INFECTION [None]
